FAERS Safety Report 6931374-5 (Version None)
Quarter: 2010Q3

REPORT INFORMATION
  Report Type: 
  Country: None (occurrence: None)
  Receive Date: 20100819
  Receipt Date: 20100809
  Transmission Date: 20110219
  Serious: Yes (Hospitalization, Other)
  Sender: FDA-Public Use
  Company Number: US-JNJFOC-20100805653

PATIENT
  Sex: Female
  Weight: 89.81 kg

DRUGS (4)
  1. DURAGESIC-100 [Suspect]
     Indication: BACK PAIN
     Route: 062
  2. FENTANYL CITRATE [Suspect]
     Indication: BACK PAIN
     Route: 062
  3. FENTANYL CITRATE [Suspect]
     Route: 062
  4. ATENOLOL [Concomitant]
     Indication: HYPERTENSION
     Route: 048

REACTIONS (11)
  - APPLICATION SITE PRURITUS [None]
  - BLOOD POTASSIUM DECREASED [None]
  - COLD SWEAT [None]
  - CONSTIPATION [None]
  - DECREASED APPETITE [None]
  - GASTRIC DISORDER [None]
  - HYPERHIDROSIS [None]
  - NAUSEA [None]
  - PAIN [None]
  - PERIPHERAL COLDNESS [None]
  - WEIGHT DECREASED [None]
